FAERS Safety Report 6418727-9 (Version None)
Quarter: 2009Q4

REPORT INFORMATION
  Report Type: 
  Country: None (occurrence: None)
  Receive Date: 20091026
  Receipt Date: 20091014
  Transmission Date: 20100525
  Serious: Yes (Other)
  Sender: FDA-Public Use
  Company Number: 2009AC000223

PATIENT
  Age: 73 Year
  Sex: Female
  Weight: 79.3795 kg

DRUGS (10)
  1. DIGOXIN [Suspect]
     Indication: CARDIAC DISORDER
     Dosage: 0.25 MG;PO
     Route: 048
     Dates: start: 20060126
  2. AZITHROMYCIN [Concomitant]
  3. OXYBUTYNIN [Concomitant]
  4. DILTIAZEM [Concomitant]
  5. FUROSEMIDE [Concomitant]
  6. OMEPRAZOLE [Concomitant]
  7. LISINOPRIL [Concomitant]
  8. HYDROCHLOROTHIAZIDE [Concomitant]
  9. DILTIAZEM HCL [Concomitant]
  10. HYDROCHLOROTHIAZIDE [Concomitant]

REACTIONS (13)
  - ANXIETY [None]
  - COUGH [None]
  - DIZZINESS [None]
  - ECONOMIC PROBLEM [None]
  - FATIGUE [None]
  - FEELING ABNORMAL [None]
  - GAIT DISTURBANCE [None]
  - MULTIPLE INJURIES [None]
  - PAIN [None]
  - THERAPEUTIC AGENT TOXICITY [None]
  - TINNITUS [None]
  - UNEVALUABLE EVENT [None]
  - VISUAL IMPAIRMENT [None]
